FAERS Safety Report 22240690 (Version 1)
Quarter: 2023Q2

REPORT INFORMATION
  Report Type: Spontaneous
  Country: US (occurrence: None)
  Receive Date: 20230421
  Receipt Date: 20230421
  Transmission Date: 20230721
  Serious: Yes (Other)
  Sender: FDA-Public Use
  Company Number: US-ROCHE-3242897

PATIENT

DRUGS (1)
  1. OCREVUS [Suspect]
     Active Substance: OCRELIZUMAB
     Indication: Product used for unknown indication
     Route: 065

REACTIONS (9)
  - Kidney infection [Unknown]
  - Abnormal uterine bleeding [Unknown]
  - Cervix carcinoma [Unknown]
  - Suicidal ideation [Unknown]
  - Diplopia [Unknown]
  - Post-traumatic stress disorder [Unknown]
  - Alopecia [Unknown]
  - Anxiety [Unknown]
  - Depression [Unknown]
